FAERS Safety Report 5264061-2 (Version None)
Quarter: 2007Q1

REPORT INFORMATION
  Report Type: 
  Country: None (occurrence: None)
  Receive Date: 20070313
  Receipt Date: 20070301
  Transmission Date: 20070707
  Serious: Yes (Hospitalization, Other)
  Sender: FDA-Public Use
  Company Number: FR-PFIZER INC-2006106169

PATIENT
  Sex: Female
  Weight: 50 kg

DRUGS (3)
  1. ZITHROMAX [Suspect]
     Indication: TOXOPLASMOSIS
     Route: 048
  2. ZITHROMAX [Suspect]
     Indication: PROPHYLAXIS
     Dosage: TEXT:2 TAB WEEKLY-FREQ:UNKNOWN
     Route: 048
  3. ZITHROMAX [Suspect]
     Dosage: TEXT:1 TAB WEEKLY
     Route: 048

REACTIONS (3)
  - ANXIETY [None]
  - DELIRIUM [None]
  - DEPRESSION [None]
